FAERS Safety Report 7212529-1 (Version None)
Quarter: 2011Q1

REPORT INFORMATION
  Report Type: 
  Country: None (occurrence: None)
  Receive Date: 20110106
  Receipt Date: 20101227
  Transmission Date: 20110831
  Serious: Yes (Hospitalization)
  Sender: FDA-Public Use
  Company Number: PHHY2010US87601

PATIENT
  Sex: Female
  Weight: 58 kg

DRUGS (15)
  1. RESTORIL [Concomitant]
     Route: 048
  2. RECLAST [Suspect]
     Indication: OSTEOPOROSIS
     Dosage: 5 MG (100ML, OVER 15 MINS)
     Route: 042
     Dates: start: 20101222
  3. OMEPRAZOLE [Concomitant]
     Route: 048
  4. ASPIRIN [Concomitant]
     Route: 048
  5. SYNTHROID [Concomitant]
     Route: 048
  6. MIRALAX [Concomitant]
     Route: 048
  7. LIOTRIX [Concomitant]
     Route: 048
  8. CLONIDINE [Concomitant]
     Route: 048
  9. ULTRAM [Concomitant]
     Route: 048
  10. M.V.I. [Concomitant]
     Dosage: UNK
     Route: 048
  11. SIMVASTATIN [Concomitant]
     Route: 048
  12. POTASSIUM [Concomitant]
     Route: 048
  13. BYSTOLIC [Concomitant]
     Route: 048
  14. ACETAMINOPHEN [Concomitant]
     Route: 048
  15. LASIX [Concomitant]
     Route: 048

REACTIONS (5)
  - FATIGUE [None]
  - DELIRIUM [None]
  - PYREXIA [None]
  - CONTUSION [None]
  - CONFUSIONAL STATE [None]
